FAERS Safety Report 20951565 (Version 1)
Quarter: 2022Q2

REPORT INFORMATION
  Report Type: Spontaneous
  Country: AR (occurrence: AR)
  Receive Date: 20220613
  Receipt Date: 20220613
  Transmission Date: 20220721
  Serious: Yes (Disabling, Other)
  Sender: FDA-Public Use
  Company Number: AR-PFIZER INC-202200822566

PATIENT
  Age: 43 Year
  Sex: Female

DRUGS (1)
  1. XELJANZ [Suspect]
     Active Substance: TOFACITINIB CITRATE
     Dosage: 5 MG, 2X/DAY
     Dates: start: 20170725

REACTIONS (10)
  - Joint injury [Unknown]
  - Disability [Unknown]
  - Pulmonary fibrosis [Unknown]
  - Intentional product misuse [Unknown]
  - Gait disturbance [Unknown]
  - Haemoptysis [Unknown]
  - Eye disorder [Unknown]
  - Cerebral disorder [Unknown]
  - Pruritus [Unknown]
  - Decreased immune responsiveness [Unknown]
